FAERS Safety Report 21415112 (Version 1)
Quarter: 2022Q4

REPORT INFORMATION
  Report Type: Spontaneous
  Country: US (occurrence: US)
  Receive Date: 20221006
  Receipt Date: 20221006
  Transmission Date: 20230113
  Serious: Yes (Other)
  Sender: FDA-Public Use
  Company Number: US-SA-SAC20221003001187

PATIENT
  Age: 42 Year
  Sex: Female

DRUGS (1)
  1. ZANTAC [Suspect]
     Active Substance: RANITIDINE HYDROCHLORIDE
     Indication: Dyspepsia
     Dosage: 300 MG, QD
     Route: 065
     Dates: start: 201601, end: 201901

REACTIONS (7)
  - Bladder cancer stage IV [Unknown]
  - Breast cancer stage IV [Unknown]
  - Colorectal cancer [Unknown]
  - Hepatic cancer stage IV [Unknown]
  - Colon cancer stage IV [Unknown]
  - Thyroid cancer [Unknown]
  - Lymphoma [Unknown]

NARRATIVE: CASE EVENT DATE: 20190101
